FAERS Safety Report 23772761 (Version 1)
Quarter: 2024Q2

REPORT INFORMATION
  Report Type: Spontaneous
  Country: US (occurrence: US)
  Receive Date: 20240423
  Receipt Date: 20240423
  Transmission Date: 20240716
  Serious: No
  Sender: FDA-Public Use
  Company Number: US-009507513-2404USA009071

PATIENT
  Age: 14 Year
  Sex: Female

DRUGS (3)
  1. EMEND [Suspect]
     Active Substance: APREPITANT
     Indication: Nausea
     Dosage: UNK
     Route: 048
  2. EMEND [Suspect]
     Active Substance: APREPITANT
     Indication: Vomiting
  3. CYPROHEPTADINE [Concomitant]
     Active Substance: CYPROHEPTADINE

REACTIONS (1)
  - Product use in unapproved indication [Unknown]
